FAERS Safety Report 4391911-4 (Version None)
Quarter: 2004Q3

REPORT INFORMATION
  Report Type: 
  Country: None (occurrence: None)
  Receive Date: 20040701
  Receipt Date: 20040622
  Transmission Date: 20050211
  Serious: Yes (Hospitalization)
  Sender: FDA-Public Use
  Company Number: 2004US000717

PATIENT
  Age: 32 Year
  Sex: Male

DRUGS (5)
  1. PROGRAF [Suspect]
     Indication: HEART TRANSPLANT
     Dosage: 3.00 MG, BID
  2. CELLCEPT [Suspect]
     Indication: IMMUNOSUPPRESSION
     Dosage: 1,250.00 MG, BID
  3. PREDNISONE TAB [Suspect]
     Indication: IMMUNOSUPPRESSION
     Dosage: 20.00 MG, UID/QD
  4. ACYCLOVIR [Concomitant]
  5. SULFAMETHOXAZOLE + TRIMETHOPRIM [Concomitant]

REACTIONS (6)
  - CONFUSIONAL STATE [None]
  - ENCEPHALITIS HERPES [None]
  - HEADACHE [None]
  - LUNG INFILTRATION [None]
  - NEUTROPENIA [None]
  - PYREXIA [None]
